FAERS Safety Report 4728309-2 (Version None)
Quarter: 2005Q3

REPORT INFORMATION
  Report Type: 
  Country: None (occurrence: None)
  Receive Date: 20050729
  Receipt Date: 20050714
  Transmission Date: 20060218
  Serious: Yes (Other)
  Sender: FDA-Public Use
  Company Number: PHBS2005JP10287

PATIENT
  Age: 45 Year
  Sex: Male

DRUGS (3)
  1. NEORAL [Suspect]
     Indication: RENAL TRANSPLANT
     Dosage: 175 MG/D
     Route: 048
  2. IMURAN [Suspect]
     Indication: RENAL TRANSPLANT
     Dosage: 50 MG/D
     Route: 048
  3. BREDININ [Suspect]
     Indication: RENAL TRANSPLANT
     Dosage: 5 MG/D
     Route: 048

REACTIONS (4)
  - CEREBELLAR ATROPHY [None]
  - DYSARTHRIA [None]
  - GAIT DISTURBANCE [None]
  - HYPOACUSIS [None]
